FAERS Safety Report 7279641-2 (Version None)
Quarter: 2011Q1

REPORT INFORMATION
  Report Type: 
  Country: None (occurrence: None)
  Receive Date: 20110203
  Receipt Date: 20110203
  Transmission Date: 20110831
  Serious: Yes (Hospitalization)
  Sender: FDA-Public Use
  Company Number: None

PATIENT
  Sex: Female
  Weight: 78.9 kg

DRUGS (2)
  1. TAXOL [Suspect]
     Dosage: 322 MG
  2. CARBOPLATIN [Suspect]
     Dosage: 772 MG

REACTIONS (27)
  - TACHYCARDIA [None]
  - HAEMATOCRIT DECREASED [None]
  - BLOOD CREATININE INCREASED [None]
  - BACTERIAL TEST POSITIVE [None]
  - MITRAL VALVE INCOMPETENCE [None]
  - BLOOD KETONE BODY PRESENT [None]
  - ACTIVATED PARTIAL THROMBOPLASTIN TIME PROLONGED [None]
  - BLOOD UREA INCREASED [None]
  - HAEMOGLOBIN DECREASED [None]
  - PLATELET COUNT DECREASED [None]
  - INTERNATIONAL NORMALISED RATIO INCREASED [None]
  - CONVULSION [None]
  - BLOOD GLUCOSE INCREASED [None]
  - BLOOD ALBUMIN DECREASED [None]
  - ATRIAL FIBRILLATION [None]
  - PYREXIA [None]
  - HYDRONEPHROSIS [None]
  - PNEUMONIA ASPIRATION [None]
  - PLEURAL EFFUSION [None]
  - CARDIOMEGALY [None]
  - ASTHENIA [None]
  - MENTAL STATUS CHANGES [None]
  - BLOOD SODIUM DECREASED [None]
  - BLOOD CHLORIDE DECREASED [None]
  - ESCHERICHIA TEST POSITIVE [None]
  - BLOOD POTASSIUM DECREASED [None]
  - VOMITING [None]
